FAERS Safety Report 8264790-2 (Version None)
Quarter: 2012Q2

REPORT INFORMATION
  Report Type: 
  Country: None (occurrence: None)
  Receive Date: 20120406
  Receipt Date: 20120328
  Transmission Date: 20120825
  Serious: Yes (Other)
  Sender: FDA-Public Use
  Company Number: US-JNJFOC-20120314995

PATIENT
  Sex: Female
  Weight: 66.68 kg

DRUGS (2)
  1. REMICADE [Suspect]
     Indication: CROHN'S DISEASE
     Route: 042
     Dates: start: 20120301
  2. REMICADE [Suspect]
     Route: 042
     Dates: start: 20120312, end: 20120312

REACTIONS (6)
  - THROAT TIGHTNESS [None]
  - DIARRHOEA [None]
  - FLUSHING [None]
  - VOMITING [None]
  - INFUSION RELATED REACTION [None]
  - PALPITATIONS [None]
